FAERS Safety Report 8463891-3 (Version None)
Quarter: 2012Q2

REPORT INFORMATION
  Report Type: 
  Country: None (occurrence: None)
  Receive Date: 20120625
  Receipt Date: 20120618
  Transmission Date: 20120825
  Serious: Yes (Hospitalization)
  Sender: FDA-Public Use
  Company Number: US-PFIZER INC-2012147368

PATIENT
  Age: 8 Year
  Sex: Male
  Weight: 48 kg

DRUGS (5)
  1. MERCAPTOPURINE [Concomitant]
     Indication: PRECURSOR B-LYMPHOBLASTIC LYMPHOMA
     Dosage: 50 MG, DAILY
     Route: 048
  2. SULFAMETHOXAZOLE AND TRIMETHOPRIM [Concomitant]
     Dosage: 80 MG, 2X/DAY
     Route: 048
  3. ONDANSETRON (ZOFRAN) [Suspect]
     Dosage: 8 MG, 3 TIMES DAILY AS NEEDED
     Route: 048
  4. METHOTREXATE [Concomitant]
     Indication: PRECURSOR B-LYMPHOBLASTIC LYMPHOMA
     Dosage: 12.5 MG, WEEKLY
     Route: 048
  5. ONDANSETRON (ZOFRAN) [Suspect]
     Dosage: 15 ONDANSETRON 4-MG ORAL TABLETS (1.25 MG/KG)
     Route: 048

REACTIONS (2)
  - INTENTIONAL OVERDOSE [None]
  - HYPOTENSION [None]
